FAERS Safety Report 14106868 (Version 1)
Quarter: 2017Q4

REPORT INFORMATION
  Report Type: Spontaneous
  Country: US (occurrence: US)
  Receive Date: 20171018
  Receipt Date: 20171018
  Transmission Date: 20180321
  Serious: No
  Sender: FDA-Public Use
  Company Number: None

PATIENT
  Age: 26 Year
  Sex: Male
  Weight: 90 kg

DRUGS (1)
  1. CREST PRO-HEALTH CLINICAL [Suspect]
     Active Substance: CETYLPYRIDINIUM CHLORIDE
     Indication: DENTAL DISORDER PROPHYLAXIS
     Dosage: ?          QUANTITY:1 BOTTLE;?
     Route: 048
     Dates: start: 20171015, end: 20171017

REACTIONS (4)
  - Burn oral cavity [None]
  - Tongue discomfort [None]
  - Ageusia [None]
  - Pain [None]

NARRATIVE: CASE EVENT DATE: 20171017
